FAERS Safety Report 7986035-0 (Version None)
Quarter: 2011Q4

REPORT INFORMATION
  Report Type: 
  Country: None (occurrence: None)
  Receive Date: 20111216
  Receipt Date: 20110105
  Transmission Date: 20120403
  Serious: No
  Sender: FDA-Public Use
  Company Number: US-BRISTOL-MYERS SQUIBB COMPANY-15473309

PATIENT
  Age: 20 Year
  Sex: Female

DRUGS (3)
  1. MULTI-VITAMIN [Concomitant]
  2. ABILIFY [Suspect]
     Dosage: INITIALLY 2MG TAKEN AFTER DOSE INCREASED TO 5MG
  3. EFFEXOR XR [Concomitant]

REACTIONS (1)
  - RASH [None]
